FAERS Safety Report 18013400 (Version 1)
Quarter: 2020Q3

REPORT INFORMATION
  Report Type: Spontaneous
  Country: US (occurrence: US)
  Receive Date: 20200710
  Receipt Date: 20200710
  Transmission Date: 20201103
  Serious: Yes (Hospitalization)
  Sender: FDA-Public Use
  Company Number: None

PATIENT
  Sex: Male

DRUGS (14)
  1. ASPRIN LOW DOSE [Concomitant]
  2. PEPCID [Concomitant]
     Active Substance: FAMOTIDINE
  3. VITAMIN E [Concomitant]
     Active Substance: .ALPHA.-TOCOPHEROL
  4. DEXABLISS [Concomitant]
     Active Substance: DEXAMETHASONE
  5. LIPITOR [Concomitant]
     Active Substance: ATORVASTATIN CALCIUM
  6. LORAZEPAM. [Concomitant]
     Active Substance: LORAZEPAM
  7. MORPHINE SULF [Concomitant]
     Active Substance: MORPHINE SULFATE
  8. FOLIC ACID. [Concomitant]
     Active Substance: FOLIC ACID
  9. ZYRTEC [Concomitant]
     Active Substance: CETIRIZINE HYDROCHLORIDE
  10. XALKORI [Suspect]
     Active Substance: CRIZOTINIB
     Indication: LUNG NEOPLASM MALIGNANT
     Route: 048
     Dates: start: 20200623
  11. DOCUSATE [Concomitant]
     Active Substance: DOCUSATE
  12. OLANZAIPINE [Concomitant]
  13. OXYCODONE [Concomitant]
     Active Substance: OXYCODONE
  14. ZOFRAN [Concomitant]
     Active Substance: ONDANSETRON HYDROCHLORIDE

REACTIONS (2)
  - Brain operation [None]
  - Therapy interrupted [None]
